FAERS Safety Report 17155425 (Version 1)
Quarter: 2019Q4

REPORT INFORMATION
  Report Type: Spontaneous
  Country: US (occurrence: US)
  Receive Date: 20191215
  Receipt Date: 20191215
  Transmission Date: 20200122
  Serious: No
  Sender: FDA-Public Use
  Company Number: US-ENDO PHARMACEUTICALS INC-2019-101363

PATIENT
  Age: 65 Year
  Sex: Male
  Weight: 74.83 kg

DRUGS (4)
  1. XIAFLEX [Suspect]
     Active Substance: COLLAGENASE CLOSTRIDIUM HISTOLYTICUM
     Dosage: UNK UNKNOWN SECOND CYCLE; FIRST INJECTION
     Route: 026
     Dates: start: 20190109
  2. XIAFLEX [Suspect]
     Active Substance: COLLAGENASE CLOSTRIDIUM HISTOLYTICUM
     Indication: PEYRONIE^S DISEASE
     Dosage: UNK UNKNOWN, FIRST CYCLE; FIRST INJECTION
     Route: 026
     Dates: start: 20181106
  3. XIAFLEX [Suspect]
     Active Substance: COLLAGENASE CLOSTRIDIUM HISTOLYTICUM
     Dosage: UNK UNKNOWN, SECOND CYCLE; SECOND INJECTION
     Route: 026
     Dates: start: 20190111
  4. XIAFLEX [Suspect]
     Active Substance: COLLAGENASE CLOSTRIDIUM HISTOLYTICUM
     Dosage: UNK; FIRST CYCLE; SECOND INJECTION
     Route: 026
     Dates: start: 201011

REACTIONS (4)
  - Tenderness [Recovered/Resolved]
  - Nodule [Recovering/Resolving]
  - Genital contusion [Unknown]
  - Genital swelling [Recovered/Resolved]

NARRATIVE: CASE EVENT DATE: 201811
